FAERS Safety Report 18848862 (Version 4)
Quarter: 2021Q3

REPORT INFORMATION
  Report Type: Report from Study
  Country: JP (occurrence: JP)
  Receive Date: 20210205
  Receipt Date: 20210720
  Transmission Date: 20211014
  Serious: Yes (Death, Hospitalization, Other)
  Sender: FDA-Public Use
  Company Number: NVSJ2020JP014327

PATIENT
  Age: 10 Year
  Sex: Male
  Weight: 14.1 kg

DRUGS (3)
  1. FLUDARABIN [Concomitant]
     Active Substance: FLUDARABINE PHOSPHATE
     Indication: LYMPHODEPLETION
     Dosage: UNK
     Route: 065
     Dates: start: 20200305
  2. KYMRIAH [Suspect]
     Active Substance: TISAGENLECLEUCEL
     Indication: ACUTE LYMPHOCYTIC LEUKAEMIA RECURRENT
     Dosage: 1.9X10^9
     Route: 041
     Dates: start: 20200310
  3. CYCLOPHOSPHAMIDE. [Concomitant]
     Active Substance: CYCLOPHOSPHAMIDE
     Indication: LYMPHODEPLETION
     Dosage: UNK
     Route: 065
     Dates: start: 20200305

REACTIONS (10)
  - Hypogammaglobulinaemia [Recovered/Resolved]
  - Graft versus host disease in lung [Fatal]
  - Pyrexia [Recovered/Resolved]
  - Malignant neoplasm progression [Recovered/Resolved]
  - Concomitant disease aggravated [Fatal]
  - Acute lymphocytic leukaemia recurrent [Recovered/Resolved]
  - Dyspnoea [Fatal]
  - Cough [Fatal]
  - Pneumothorax [Fatal]
  - Cytokine release syndrome [Recovered/Resolved]

NARRATIVE: CASE EVENT DATE: 20200312
